FAERS Safety Report 8003311-6 (Version None)
Quarter: 2011Q4

REPORT INFORMATION
  Report Type: 
  Country: None (occurrence: None)
  Receive Date: 20111222
  Receipt Date: 20111220
  Transmission Date: 20120403
  Serious: Yes (Death)
  Sender: FDA-Public Use
  Company Number: PHHY2011VE110915

PATIENT
  Sex: Female

DRUGS (7)
  1. ZOLEDRONOC ACID [Suspect]
     Indication: OSTEOPOROSIS
     Dosage: UNK
     Route: 042
     Dates: start: 20101001
  2. FOLIC ACID [Concomitant]
  3. LOSARTAN POTASSIUM [Concomitant]
     Indication: HYPERTENSION
  4. INDAPAMIDE [Concomitant]
  5. INSULIN [Concomitant]
  6. ACETYLSALICYLIC ACID SRT [Concomitant]
  7. ISOSORBIDE DINITRATE [Concomitant]

REACTIONS (1)
  - RESPIRATORY FAILURE [None]
